FAERS Safety Report 17398752 (Version 1)
Quarter: 2020Q1

REPORT INFORMATION
  Report Type: Spontaneous
  Country: US (occurrence: US)
  Receive Date: 20200210
  Receipt Date: 20200210
  Transmission Date: 20200409
  Serious: Yes (Other)
  Sender: FDA-Public Use
  Company Number: US-VAYAPHARMA-2019-US-004419

PATIENT
  Age: 23 Year
  Sex: Female
  Weight: 108.86 kg

DRUGS (6)
  1. SPIRONOLACTONE. [Concomitant]
     Active Substance: SPIRONOLACTONE
  2. LEVOTHYROXINE. [Concomitant]
     Active Substance: LEVOTHYROXINE
  3. VAYARIN (NON-SPECIFIC) [Suspect]
     Active Substance: DOCONEXENT\ICOSAPENT\PHOSPHATIDYL SERINE
     Indication: PRODUCT DISPENSING ERROR
     Route: 048
     Dates: start: 201902
  4. LAMOTRIGINE. [Concomitant]
     Active Substance: LAMOTRIGINE
  5. TRINTELLIX [Concomitant]
     Active Substance: VORTIOXETINE HYDROBROMIDE
  6. LORAZEPAM. [Concomitant]
     Active Substance: LORAZEPAM

REACTIONS (4)
  - Product dispensing error [Unknown]
  - Seizure [Unknown]
  - Wrong product administered [Unknown]
  - Condition aggravated [Unknown]

NARRATIVE: CASE EVENT DATE: 201902
